FAERS Safety Report 7350306-1 (Version None)
Quarter: 2011Q1

REPORT INFORMATION
  Report Type: 
  Country: None (occurrence: None)
  Receive Date: 20110314
  Receipt Date: 20110311
  Transmission Date: 20110831
  Serious: No
  Sender: FDA-Public Use
  Company Number: US-TEVA-270966USA

PATIENT
  Sex: Female
  Weight: 63.56 kg

DRUGS (4)
  1. BIRTH CONTROL PILL [Concomitant]
     Indication: CONTRACEPTION
     Dates: start: 20090101, end: 20110201
  2. ALBUTEROL INHALER [Concomitant]
     Indication: ASTHMA
  3. PLAN B ONE-STEP [Suspect]
     Indication: POST COITAL CONTRACEPTION
     Route: 048
     Dates: start: 20110209, end: 20110209
  4. SYMBICORT [Concomitant]
     Indication: ASTHMA
     Dates: start: 20110101

REACTIONS (2)
  - DRUG INEFFECTIVE [None]
  - PREGNANCY AFTER POST COITAL CONTRACEPTION [None]
